FAERS Safety Report 5088066-X (Version None)
Quarter: 2006Q3

REPORT INFORMATION
  Report Type: 
  Country: None (occurrence: None)
  Receive Date: 20060823
  Receipt Date: 20060823
  Transmission Date: 20061208
  Serious: Yes (Other)
  Sender: FDA-Public Use
  Company Number: None

PATIENT
  Age: 56 Year
  Sex: Male
  Weight: 84.8226 kg

DRUGS (2)
  1. DARBEPOETIN INJECTION [Suspect]
     Dosage: 200 MCG SC EVERY 2 WKS
     Route: 058
  2. NEUPOGEN [Suspect]
     Dosage: 0.3 MG QD

REACTIONS (8)
  - ABDOMINAL DISTENSION [None]
  - ABDOMINAL PAIN [None]
  - ANAEMIA [None]
  - BONE PAIN [None]
  - DIARRHOEA [None]
  - NAUSEA [None]
  - PYREXIA [None]
  - VOMITING [None]
